FAERS Safety Report 4291591-2 (Version None)
Quarter: 2004Q1

REPORT INFORMATION
  Report Type: 
  Country: None (occurrence: None)
  Receive Date: 20040210
  Receipt Date: 20040210
  Transmission Date: 20041129
  Serious: Yes (Life-Threatening, Hospitalization)
  Sender: FDA-Public Use
  Company Number: None

PATIENT
  Age: 63 Year
  Sex: Female

DRUGS (4)
  1. LOTREL [Suspect]
     Indication: HYPERTENSION
     Dosage: 10MG/5MG
  2. LIPITOR [Concomitant]
  3. CELEXA [Concomitant]
  4. DYAZIDE [Concomitant]

REACTIONS (1)
  - SWELLING FACE [None]
